FAERS Safety Report 19623021 (Version 2)
Quarter: 2021Q3

REPORT INFORMATION
  Report Type: Spontaneous
  Country: CZ (occurrence: CZ)
  Receive Date: 20210728
  Receipt Date: 20210922
  Transmission Date: 20211014
  Serious: Yes (Death, Hospitalization, Other)
  Sender: FDA-Public Use
  Company Number: CZ-ABBVIE-21K-217-4013161-00

PATIENT
  Age: 44 Year
  Sex: Female
  Weight: 110 kg

DRUGS (2)
  1. RINVOQ [Suspect]
     Active Substance: UPADACITINIB
     Indication: JUVENILE IDIOPATHIC ARTHRITIS
     Route: 048
     Dates: start: 202101
  2. MEDROL [Concomitant]
     Active Substance: METHYLPREDNISOLONE
     Indication: PRODUCT USED FOR UNKNOWN INDICATION
     Dosage: MORE THAN 4 MG

REACTIONS (10)
  - Nocturnal dyspnoea [Unknown]
  - Pulmonary hypertension [Unknown]
  - Circulatory collapse [Unknown]
  - Vestibulitis [Unknown]
  - Folliculitis [Unknown]
  - Fatigue [Fatal]
  - Death [Fatal]
  - Skin atrophy [Unknown]
  - Contusion [Unknown]
  - Blood blister [Unknown]

NARRATIVE: CASE EVENT DATE: 202105
